FAERS Safety Report 15224253 (Version 2)
Quarter: 2018Q3

REPORT INFORMATION
  Report Type: Spontaneous
  Country: JP (occurrence: JP)
  Receive Date: 20180731
  Receipt Date: 20180823
  Transmission Date: 20181010
  Serious: Yes (Hospitalization, Other)
  Sender: FDA-Public Use
  Company Number: JP-SUCAMPO PHARMACEUTICALS INC.-SPI201800766

PATIENT

DRUGS (12)
  1. NESINA [Concomitant]
     Active Substance: ALOGLIPTIN BENZOATE
     Dosage: UNK
     Dates: start: 20160817
  2. VOGLIBOSE [Concomitant]
     Active Substance: VOGLIBOSE
  3. URSODEOXYCHOLIC ACID [Concomitant]
     Active Substance: URSODIOL
     Dosage: UNK
     Dates: start: 20160817
  4. PORTOLAC [Concomitant]
     Active Substance: LACTITOL
     Dosage: UNK
     Dates: start: 20170413
  5. HARVONI [Suspect]
     Active Substance: LEDIPASVIR\SOFOSBUVIR
     Indication: HEPATITIS C
     Dosage: 1 DF, QD
     Route: 048
     Dates: start: 20160817, end: 20161109
  6. CALONAL [Concomitant]
     Active Substance: ACETAMINOPHEN
  7. HARVONI [Suspect]
     Active Substance: LEDIPASVIR\SOFOSBUVIR
     Indication: HEPATIC CIRRHOSIS
  8. ALLEGRA [Concomitant]
     Active Substance: FEXOFENADINE HYDROCHLORIDE
     Dosage: UNK
     Dates: start: 20170518
  9. SPIRONOLACTONE. [Suspect]
     Active Substance: SPIRONOLACTONE
     Indication: OEDEMA DUE TO HEPATIC DISEASE
     Dosage: UNK
     Route: 048
     Dates: start: 20160708
  10. MOHRUS PAP XR [Concomitant]
     Active Substance: KETOPROFEN
  11. AMITIZA [Suspect]
     Active Substance: LUBIPROSTONE
     Indication: CONSTIPATION
     Dosage: UNK
     Route: 048
     Dates: start: 20170501
  12. LUSEFI [Suspect]
     Active Substance: LUSEOGLIFLOZIN
     Indication: DIABETES MELLITUS
     Dosage: UNK
     Route: 048
     Dates: start: 20161205

REACTIONS (2)
  - Ascites [Recovering/Resolving]
  - Hepatic encephalopathy [Recovered/Resolved]

NARRATIVE: CASE EVENT DATE: 20170605
